FAERS Safety Report 8707624 (Version 2)
Quarter: 2013Q4

REPORT INFORMATION
  Report Type: Spontaneous
  Country: US (occurrence: US)
  Receive Date: 20120805
  Receipt Date: 20131106
  Transmission Date: 20140711
  Serious: Yes (Hospitalization, Other)
  Sender: FDA-Public Use
  Company Number: US-009507513-1207USA011440

PATIENT
  Age: 56 Year
  Sex: Male

DRUGS (2)
  1. VICTRELIS [Suspect]
     Dosage: 800 MG, TID
     Route: 048
  2. VICTRELIS [Suspect]
     Dosage: 600 MG, BID
     Route: 048

REACTIONS (3)
  - Myocardial ischaemia [Unknown]
  - Influenza like illness [Unknown]
  - Anaemia [Unknown]
